FAERS Safety Report 9380168 (Version 1)
Quarter: 2013Q3

REPORT INFORMATION
  Report Type: Spontaneous
  Country: DK (occurrence: DK)
  Receive Date: 20130702
  Receipt Date: 20130702
  Transmission Date: 20140515
  Serious: Yes (Other)
  Sender: FDA-Public Use
  Company Number: DK-TEVA-415966ISR

PATIENT
  Sex: 0

DRUGS (4)
  1. GEMCITABINE HYDROCHLORIDE [Suspect]
     Route: 042
  2. OXALIPLATIN [Suspect]
     Route: 042
  3. PANITUMUMAB [Concomitant]
     Route: 042
  4. CAPECITABINE [Concomitant]

REACTIONS (1)
  - Peripheral motor neuropathy [Unknown]
